FAERS Safety Report 9182679 (Version 2)
Quarter: 2013Q4

REPORT INFORMATION
  Report Type: Spontaneous
  Country: FR (occurrence: FR)
  Receive Date: 20130322
  Receipt Date: 20131010
  Transmission Date: 20140711
  Serious: Yes (Death)
  Sender: FDA-Public Use
  Company Number: FR-BRISTOL-MYERS SQUIBB COMPANY-17477282

PATIENT
  Age: 52 Year
  Sex: Male

DRUGS (5)
  1. YERVOY [Suspect]
     Dosage: 1ST CYC:12OCT12?2ND CYC:31OCT12
     Route: 042
     Dates: start: 20121012, end: 20121123
  2. NEO-MERCAZOLE [Concomitant]
  3. CORTANCYL [Concomitant]
  4. DIFFU-K [Concomitant]
  5. CACIT D3 [Concomitant]

REACTIONS (1)
  - Hypophysitis [Fatal]
